FAERS Safety Report 7671063-5 (Version None)
Quarter: 2011Q3

REPORT INFORMATION
  Report Type: 
  Country: None (occurrence: None)
  Receive Date: 20110809
  Receipt Date: 20110804
  Transmission Date: 20111222
  Serious: Yes (Death, Hospitalization, Other)
  Sender: FDA-Public Use
  Company Number: US-AMGEN-USASP2010002310

PATIENT
  Age: 52 Year
  Sex: Female

DRUGS (19)
  1. NPLATE [Suspect]
     Indication: IDIOPATHIC THROMBOCYTOPENIC PURPURA
     Dosage: 234 A?G, Q2WK
     Route: 058
     Dates: start: 20100819, end: 20100917
  2. RESTORIL [Concomitant]
     Dosage: 15 MG, UNK
     Route: 048
     Dates: start: 20100713
  3. VICODIN ES [Concomitant]
     Dosage: UNK
     Dates: start: 20100726
  4. DOXYCYCLINE [Concomitant]
     Dosage: 100 MG, UNK
     Route: 048
     Dates: start: 20100901
  5. COMPAZINE [Concomitant]
     Dosage: 10 MG, PRN
     Route: 048
     Dates: start: 20100615
  6. ATIVAN [Concomitant]
     Dosage: 1 MG, UNK
     Route: 048
  7. DEXAMETHASONE [Concomitant]
     Dosage: 10 MG, BID
     Route: 048
     Dates: start: 20100922
  8. TENORMIN [Concomitant]
     Dosage: 50 MG, UNK
     Route: 048
     Dates: start: 20100609
  9. SENOKOT [Concomitant]
     Dosage: 8.6 MG, UNK
     Dates: start: 20100726
  10. HYDROCHLOROTHIAZIDE [Concomitant]
     Dosage: 25 MG, UNK
     Route: 048
     Dates: start: 20100910
  11. OXYCONTIN [Concomitant]
     Dosage: 60 MG, UNK
     Dates: start: 20100922
  12. ALBUTEROL [Concomitant]
     Dosage: 2.5 MG/ML, UNK
     Route: 055
     Dates: start: 20100726
  13. NICODERM [Concomitant]
     Dosage: 14 MG, UNK
     Route: 062
  14. DILAUDID [Concomitant]
     Dosage: 4 MG, PRN
     Dates: start: 20100922
  15. EMLA [Concomitant]
     Dosage: 2.5 %, UNK
     Route: 061
     Dates: start: 20100802
  16. DEMEROL [Concomitant]
     Dosage: 50 MG, UNK
     Route: 048
     Dates: start: 20100820
  17. CLINDAGEL [Concomitant]
     Dosage: UNK
     Route: 061
     Dates: start: 20100901
  18. TARCEVA [Concomitant]
     Dosage: 150 MG, UNK
     Route: 048
     Dates: start: 20100901
  19. AMBIEN [Concomitant]
     Dosage: 5 MG, UNK
     Route: 048
     Dates: start: 20100908

REACTIONS (13)
  - NEOPLASM MALIGNANT [None]
  - ODYNOPHAGIA [None]
  - HEPATOSPLENOMEGALY [None]
  - SKIN IRRITATION [None]
  - DRUG INEFFECTIVE [None]
  - DYSPHAGIA [None]
  - LUNG CARCINOMA CELL TYPE UNSPECIFIED STAGE IV [None]
  - ORAL CANDIDIASIS [None]
  - VOMITING [None]
  - ADVERSE DRUG REACTION [None]
  - NAUSEA [None]
  - BRONCHITIS [None]
  - DEPRESSED MOOD [None]
